FAERS Safety Report 7152316-6 (Version None)
Quarter: 2010Q4

REPORT INFORMATION
  Report Type: 
  Country: None (occurrence: None)
  Receive Date: 20101123
  Receipt Date: 20100729
  Transmission Date: 20110411
  Serious: Yes (Life-Threatening, Other)
  Sender: FDA-Public Use
  Company Number: 2010003265

PATIENT
  Age: 68 Year
  Sex: Female

DRUGS (2)
  1. TARCEVA [Suspect]
     Indication: NON-SMALL CELL LUNG CANCER
     Dosage: (150 MG, QD), ORAL
     Route: 048
     Dates: start: 20100311, end: 20100715
  2. DEXAMETHASONE SODIUM POSPHATE [Suspect]
     Indication: METASTASIS
     Dosage: (4 MG, 2 IN 1 D), ORAL
     Route: 048
     Dates: start: 20100401

REACTIONS (6)
  - ENTEROVESICAL FISTULA [None]
  - HEADACHE [None]
  - NAUSEA [None]
  - NON-SMALL CELL LUNG CANCER METASTATIC [None]
  - RECTAL PERFORATION [None]
  - VOMITING [None]
